FAERS Safety Report 5029190-7 (Version None)
Quarter: 2006Q2

REPORT INFORMATION
  Report Type: 
  Country: None (occurrence: None)
  Receive Date: 20060613
  Receipt Date: 20060602
  Transmission Date: 20061013
  Serious: Yes (Hospitalization, Other)
  Sender: FDA-Public Use
  Company Number: DEWYE630017MAY06

PATIENT
  Age: 17 Year
  Sex: Female

DRUGS (3)
  1. VENLAFAXINE HCL [Suspect]
     Dosage: 10 CAPSULES (OVERDOSE AMOUNT 750 MG) ORAL
     Route: 048
     Dates: start: 20060515, end: 20060515
  2. ALCOHOL (ETHANOL) [Suspect]
     Dosage: 200 ML (40-{45 %)  ORAL
     Route: 048
     Dates: start: 20060515, end: 20060515
  3. LORAZEPAM [Suspect]
     Dosage: 3 TABLETS (OVERDOSE AMOUNT 3 MG)   ORAL
     Route: 048
     Dates: start: 20060515, end: 20060515

REACTIONS (6)
  - DRUG LEVEL BELOW THERAPEUTIC [None]
  - FATIGUE [None]
  - INTENTIONAL OVERDOSE [None]
  - MYDRIASIS [None]
  - NYSTAGMUS [None]
  - SUICIDE ATTEMPT [None]
